FAERS Safety Report 8248512-7 (Version None)
Quarter: 2012Q1

REPORT INFORMATION
  Report Type: 
  Country: None (occurrence: None)
  Receive Date: 20120330
  Receipt Date: 20120322
  Transmission Date: 20120608
  Serious: Yes (Hospitalization, Disabling)
  Sender: FDA-Public Use
  Company Number: CG-MERCK-1203USA03399

PATIENT
  Age: 58 Year
  Sex: Female
  Weight: 68 kg

DRUGS (1)
  1. STROMECTOL [Suspect]
     Indication: ONCHOCERCIASIS
     Route: 048
     Dates: start: 20111217

REACTIONS (7)
  - AGITATION [None]
  - LOGORRHOEA [None]
  - COMA [None]
  - CONJUNCTIVAL HAEMORRHAGE [None]
  - VERTIGO [None]
  - URINARY INCONTINENCE [None]
  - ENCEPHALOPATHY [None]
